FAERS Safety Report 5465535-1 (Version None)
Quarter: 2007Q3

REPORT INFORMATION
  Report Type: 
  Country: None (occurrence: None)
  Receive Date: 20070924
  Receipt Date: 19990323
  Transmission Date: 20080115
  Serious: Yes (Hospitalization)
  Sender: FDA-Public Use
  Company Number: FR-PFIZER INC-2006118245

PATIENT
  Sex: Male

DRUGS (4)
  1. IRINOTECAN HCL [Suspect]
     Indication: COLORECTAL CANCER
     Dosage: DAILY DOSE:760MG
     Route: 042
     Dates: start: 19990225, end: 19990225
  2. FONCITRIL 4000 [Concomitant]
  3. STHENOREX [Concomitant]
  4. TEMESTA [Concomitant]

REACTIONS (1)
  - RENAL COLIC [None]
